FAERS Safety Report 9500604 (Version 2)
Quarter: 2013Q4

REPORT INFORMATION
  Report Type: Spontaneous
  Country: US (occurrence: US)
  Receive Date: 20130905
  Receipt Date: 20131107
  Transmission Date: 20140711
  Serious: Yes (Other)
  Sender: FDA-Public Use
  Company Number: US-COVIDIEN/TYCO HEALTHCARE/MALLINCKRODT-T201304226

PATIENT
  Age: 72 Year
  Sex: Female

DRUGS (2)
  1. GABLOFEN [Suspect]
     Indication: PAIN
     Dosage: 168.79 MCG/DAY
     Route: 037
  2. MORPHINE [Suspect]
     Indication: PAIN
     Dosage: 4.501 MG/DAY
     Route: 037

REACTIONS (3)
  - Mental status changes [Unknown]
  - Hallucination [Unknown]
  - Depressed level of consciousness [Unknown]
